FAERS Safety Report 9613231 (Version 1)
Quarter: 2013Q4

REPORT INFORMATION
  Report Type: Spontaneous
  Country: US (occurrence: US)
  Receive Date: 20131010
  Receipt Date: 20131010
  Transmission Date: 20140711
  Serious: Yes (Other)
  Sender: FDA-Public Use
  Company Number: US-GLAXOSMITHKLINE-A1044941A

PATIENT
  Age: 63 Year
  Sex: Male

DRUGS (1)
  1. LAMICTAL XR [Suspect]
     Indication: CONVULSION
     Dosage: 50MG UNKNOWN
     Dates: start: 200903

REACTIONS (3)
  - Convulsion [Unknown]
  - Personality change [Unknown]
  - Drug ineffective [Unknown]
